FAERS Safety Report 5719334-3 (Version None)
Quarter: 2008Q2

REPORT INFORMATION
  Report Type: 
  Country: None (occurrence: None)
  Receive Date: 20080424
  Receipt Date: 20080418
  Transmission Date: 20081010
  Serious: Yes (Other)
  Sender: FDA-Public Use
  Company Number: 2008009932

PATIENT
  Age: 42 Year
  Sex: Female
  Weight: 48.9885 kg

DRUGS (2)
  1. LISTERINE WHITENING QUICK DISSOLVING STRIPS (NO ACTIVE INGREDIENT) [Suspect]
     Indication: DENTAL CARE
     Dosage: 2 STRIPS TWICE A DAY (2 IN 1 D), ORAL
     Route: 048
     Dates: start: 20080406, end: 20080410
  2. POTASSIUM (POTASSIUM) [Concomitant]

REACTIONS (5)
  - IRRITABILITY [None]
  - RASH MACULAR [None]
  - RASH PRURITIC [None]
  - SKIN DISCOLOURATION [None]
  - URTICARIA [None]
